FAERS Safety Report 7462354-1 (Version None)
Quarter: 2011Q2

REPORT INFORMATION
  Report Type: 
  Country: None (occurrence: None)
  Receive Date: 20110506
  Receipt Date: 20110425
  Transmission Date: 20111010
  Serious: Yes (Hospitalization)
  Sender: FDA-Public Use
  Company Number: IL-JNJFOC-20110401728

PATIENT
  Sex: Female
  Weight: 64.5 kg

DRUGS (8)
  1. SIMVASTATIN [Concomitant]
     Route: 048
  2. ICHTHYOL [Concomitant]
     Route: 061
  3. GOLIMUMAB [Suspect]
     Route: 058
  4. GOLIMUMAB [Suspect]
     Route: 058
  5. GOLIMUMAB [Suspect]
     Route: 058
  6. DIPYRONE [Concomitant]
     Route: 048
  7. GOLIMUMAB [Suspect]
     Indication: COLITIS ULCERATIVE
     Route: 058
  8. GOLIMUMAB [Suspect]
     Route: 058

REACTIONS (1)
  - COLITIS ULCERATIVE [None]
